FAERS Safety Report 21016362 (Version 1)
Quarter: 2022Q2

REPORT INFORMATION
  Report Type: Spontaneous
  Country: US (occurrence: US)
  Receive Date: 20220628
  Receipt Date: 20220628
  Transmission Date: 20220721
  Serious: No
  Sender: FDA-Public Use
  Company Number: US-IMPEL PHARMACEUTICALS INC-2022-SPO-TR-0086

PATIENT

DRUGS (3)
  1. TRUDHESA [Suspect]
     Active Substance: DIHYDROERGOTAMINE MESYLATE
     Indication: Migraine with aura
     Route: 065
  2. IMITREX [Concomitant]
     Active Substance: SUMATRIPTAN SUCCINATE
     Indication: Migraine
  3. EMGALITY [Concomitant]
     Active Substance: GALCANEZUMAB-GNLM
     Indication: Product used for unknown indication

REACTIONS (3)
  - Drug ineffective [Unknown]
  - Product use complaint [Unknown]
  - Nausea [Unknown]

NARRATIVE: CASE EVENT DATE: 20220506
